FAERS Safety Report 7632638-2 (Version None)
Quarter: 2011Q3

REPORT INFORMATION
  Report Type: 
  Country: None (occurrence: None)
  Receive Date: 20110725
  Receipt Date: 20101105
  Transmission Date: 20111222
  Serious: No
  Sender: FDA-Public Use
  Company Number: US-BRISTOL-MYERS SQUIBB COMPANY-15369887

PATIENT
  Age: 77 Year
  Sex: Female
  Weight: 81 kg

DRUGS (11)
  1. ISORBIDE [Concomitant]
  2. OMEPRAZOLE [Concomitant]
  3. CENTRUM SILVER [Concomitant]
  4. NIFEDIPINE [Concomitant]
  5. VITAMIN B-12 [Concomitant]
     Dosage: PILL AND MONTHLY SHOT
  6. NOVOLOG [Concomitant]
     Dosage: 1 D.F:70/30 UNITS NOT SPECIFIED
  7. LORAZEPAM [Concomitant]
  8. LISINOPRIL [Concomitant]
  9. WARFARIN SODIUM [Suspect]
     Indication: ATRIAL FIBRILLATION
  10. FOLIC ACID [Concomitant]
  11. ZOLPIDEM [Concomitant]

REACTIONS (1)
  - INTERNATIONAL NORMALISED RATIO DECREASED [None]
